FAERS Safety Report 12828171 (Version 4)
Quarter: 2016Q4

REPORT INFORMATION
  Report Type: Spontaneous
  Country: US (occurrence: US)
  Receive Date: 20161007
  Receipt Date: 20161228
  Transmission Date: 20170207
  Serious: Yes (Disabling, Other)
  Sender: FDA-Public Use
  Company Number: US-009507513-1609USA014714

PATIENT
  Sex: Male
  Weight: 73.92 kg

DRUGS (6)
  1. PROPECIA [Suspect]
     Active Substance: FINASTERIDE
     Indication: ALOPECIA
  2. FINASTERIDE. [Suspect]
     Active Substance: FINASTERIDE
     Indication: ALOPECIA
     Dosage: 5 MG, UNK
     Route: 048
     Dates: start: 20080807, end: 20100705
  3. FINASTERIDE. [Suspect]
     Active Substance: FINASTERIDE
     Dosage: 5 MG, UNK
     Route: 048
     Dates: start: 20110414, end: 20131127
  4. PROPECIA [Suspect]
     Active Substance: FINASTERIDE
     Indication: ALOPECIA
     Dosage: 1 MG, UNK
     Route: 048
     Dates: start: 2001, end: 2014
  5. AVODART [Suspect]
     Active Substance: DUTASTERIDE
     Indication: ACNE
     Dosage: UNK
     Route: 065
     Dates: start: 2014, end: 201406
  6. PROSCAR [Suspect]
     Active Substance: FINASTERIDE
     Indication: ALOPECIA
     Dosage: 5 MG, UNK
     Route: 048
     Dates: start: 20101206, end: 201101

REACTIONS (23)
  - Drug administration error [Unknown]
  - Acne [Unknown]
  - Gynaecomastia [Unknown]
  - Suicidal ideation [Unknown]
  - Personality change [Not Recovered/Not Resolved]
  - Hypothyroidism [Unknown]
  - Sleep disorder [Unknown]
  - Hair transplant [Unknown]
  - Depression [Not Recovered/Not Resolved]
  - Loss of libido [Recovered/Resolved]
  - Anxiety [Not Recovered/Not Resolved]
  - Dyspnoea [Unknown]
  - Hot flush [Unknown]
  - Panic attack [Not Recovered/Not Resolved]
  - Adrenal disorder [Unknown]
  - Asthenia [Recovering/Resolving]
  - Muscle atrophy [Recovering/Resolving]
  - Erectile dysfunction [Recovered/Resolved]
  - Sexual dysfunction [Recovering/Resolving]
  - Adverse event [Unknown]
  - Disturbance in attention [Unknown]
  - Apathy [Unknown]
  - Hypogonadism [Unknown]

NARRATIVE: CASE EVENT DATE: 2004
